FAERS Safety Report 10884036 (Version 3)
Quarter: 2015Q2

REPORT INFORMATION
  Report Type: Spontaneous
  Country: CA (occurrence: CA)
  Receive Date: 20150304
  Receipt Date: 20150407
  Transmission Date: 20150821
  Serious: Yes (Other)
  Sender: FDA-Public Use
  Company Number: CA-JNJFOC-20150218147

PATIENT
  Weight: 42.18 kg

DRUGS (2)
  1. TYLENOL [Suspect]
     Active Substance: ACETAMINOPHEN
     Route: 048
  2. TYLENOL [Suspect]
     Active Substance: ACETAMINOPHEN
     Indication: PRODUCT USED FOR UNKNOWN INDICATION
     Dosage: 16 PILLS
     Route: 048

REACTIONS (5)
  - Intentional overdose [Unknown]
  - Yellow skin [Unknown]
  - Suicide attempt [Unknown]
  - Hepatic failure [Unknown]
  - Vomiting [Unknown]
